FAERS Safety Report 6335071-9 (Version None)
Quarter: 2009Q3

REPORT INFORMATION
  Report Type: 
  Country: None (occurrence: None)
  Receive Date: 20090831
  Receipt Date: 20090824
  Transmission Date: 20100115
  Serious: Yes (Hospitalization)
  Sender: FDA-Public Use
  Company Number: A0805003A

PATIENT
  Sex: Male
  Weight: 28 kg

DRUGS (2)
  1. SERETIDE [Suspect]
     Indication: ASTHMA
     Route: 055
     Dates: start: 20080801
  2. FLONASE [Concomitant]
     Dosage: 1PUFF TWICE PER DAY
     Route: 045
     Dates: start: 20080801

REACTIONS (3)
  - DIARRHOEA [None]
  - OVERDOSE [None]
  - VOMITING [None]
